FAERS Safety Report 15155983 (Version 3)
Quarter: 2018Q3

REPORT INFORMATION
  Report Type: Spontaneous
  Country: GB (occurrence: GB)
  Receive Date: 20180717
  Receipt Date: 20180808
  Transmission Date: 20181010
  Serious: Yes (Other)
  Sender: FDA-Public Use
  Company Number: GB-BAUSCH-BL-2018-019464

PATIENT
  Sex: Female

DRUGS (1)
  1. DICLOFENAC [Suspect]
     Active Substance: DICLOFENAC
     Indication: BACK PAIN
     Dosage: 50 MG, UNK
     Route: 065

REACTIONS (8)
  - Hypersensitivity [Unknown]
  - Palpitations [Unknown]
  - Lip swelling [Unknown]
  - Weight decreased [Unknown]
  - Swollen tongue [Unknown]
  - Swelling [Unknown]
  - Vision blurred [Unknown]
  - Diarrhoea [Unknown]
